FAERS Safety Report 15286984 (Version 2)
Quarter: 2018Q3

REPORT INFORMATION
  Report Type: Other
  Country: JP (occurrence: JP)
  Receive Date: 20180816
  Receipt Date: 20180817
  Transmission Date: 20181010
  Serious: No
  Sender: FDA-Public Use
  Company Number: JP-LUPIN PHARMACEUTICALS INC.-2018-02023

PATIENT
  Age: 35 Year
  Sex: Male
  Weight: 77 kg

DRUGS (1)
  1. LEVOFLOXACIN TABLETS USP 500 MG [Suspect]
     Active Substance: LEVOFLOXACIN
     Indication: GASTROENTERITIS BACTERIAL
     Dosage: 500 MG, BID
     Route: 048
     Dates: start: 20170616, end: 20170617

REACTIONS (1)
  - Tendonitis [Recovered/Resolved]

NARRATIVE: CASE EVENT DATE: 20170616
